FAERS Safety Report 23383929 (Version 2)
Quarter: 2025Q2

REPORT INFORMATION
  Report Type: Spontaneous
  Country: US (occurrence: US)
  Receive Date: 20240109
  Receipt Date: 20250415
  Transmission Date: 20250716
  Serious: No
  Sender: TEVA
  Company Number: CID000000000043362

PATIENT
  Sex: Female

DRUGS (1)
  1. ETHINYL ESTRADIOL\LEVONORGESTREL [Suspect]
     Active Substance: ETHINYL ESTRADIOL\LEVONORGESTREL
     Indication: Contraception
     Route: 065

REACTIONS (3)
  - Crying [Unknown]
  - Drug ineffective [Recovered/Resolved]
  - Depression [Unknown]
